FAERS Safety Report 10308069 (Version 3)
Quarter: 2014Q4

REPORT INFORMATION
  Report Type: Spontaneous
  Country: IE (occurrence: IE)
  Receive Date: 20140716
  Receipt Date: 20141103
  Transmission Date: 20150528
  Serious: Yes (Life-Threatening, Hospitalization, Other)
  Sender: FDA-Public Use
  Company Number: PHFR2014IE004933

PATIENT
  Age: 44 Year
  Sex: Male

DRUGS (2)
  1. CLOZARIL [Suspect]
     Active Substance: CLOZAPINE
     Dosage: RESTARTED AT A LOWER DOSE
     Route: 048
  2. CLOZARIL [Suspect]
     Active Substance: CLOZAPINE
     Indication: SCHIZOPHRENIA
     Dosage: UKN
     Route: 048
     Dates: start: 20030331

REACTIONS (8)
  - Brain abscess [Recovered/Resolved]
  - Hydrocephalus [Recovered/Resolved]
  - Central nervous system lesion [Recovered/Resolved]
  - Seizure [Unknown]
  - Encephalitis [Unknown]
  - White blood cell count increased [Recovered/Resolved]
  - Neutrophil count increased [Recovered/Resolved]
  - Abscess rupture [Recovered/Resolved]

NARRATIVE: CASE EVENT DATE: 20140318
